FAERS Safety Report 4314134-3 (Version None)
Quarter: 2004Q1

REPORT INFORMATION
  Report Type: 
  Country: None (occurrence: None)
  Receive Date: 20040302
  Receipt Date: 20031105
  Transmission Date: 20041129
  Serious: No
  Sender: FDA-Public Use
  Company Number: 701203

PATIENT
  Age: 60 Year
  Sex: Female
  Weight: 65.7716 kg

DRUGS (1)
  1. AMEVIVE [Suspect]
     Indication: PSORIASIS
     Dosage: 7.5 MG QW IV
     Route: 042
     Dates: start: 20030723

REACTIONS (5)
  - LARYNGITIS [None]
  - LYMPHADENOPATHY [None]
  - NECK PAIN [None]
  - T-LYMPHOCYTE COUNT DECREASED [None]
  - VIRAL INFECTION [None]
